FAERS Safety Report 5952700-X (Version None)
Quarter: 2008Q4

REPORT INFORMATION
  Report Type: 
  Country: None (occurrence: None)
  Receive Date: 20081114
  Receipt Date: 20081105
  Transmission Date: 20090506
  Serious: Yes (Life-Threatening, Other)
  Sender: FDA-Public Use
  Company Number: US-BAYER-200837006NA

PATIENT
  Age: 13 Year
  Sex: Male

DRUGS (1)
  1. MAGNEVIST [Suspect]
     Indication: NUCLEAR MAGNETIC RESONANCE IMAGING BRAIN
     Dosage: TOTAL DAILY DOSE: 6 ML  UNIT DOSE: 10 ML
     Dates: start: 20080929, end: 20080929

REACTIONS (3)
  - ANAPHYLACTIC REACTION [None]
  - CARDIAC ARREST [None]
  - NERVOUS SYSTEM DISORDER [None]
